FAERS Safety Report 23741680 (Version 1)
Quarter: 2024Q2

REPORT INFORMATION
  Report Type: Spontaneous
  Country: US (occurrence: US)
  Receive Date: 20240415
  Receipt Date: 20240415
  Transmission Date: 20240716
  Serious: Yes (Other)
  Sender: FDA-Public Use
  Company Number: US-ASTELLAS-2023US016144

PATIENT
  Age: 67 Year
  Sex: Male

DRUGS (4)
  1. LEXISCAN [Suspect]
     Active Substance: REGADENOSON
     Indication: Coronary artery disease
     Dosage: 0.4 MG/ML, UNKNOWN FREQ.
     Route: 065
     Dates: start: 20230511, end: 20230511
  2. LEXISCAN [Suspect]
     Active Substance: REGADENOSON
     Indication: Coronary artery disease
     Dosage: 0.4 MG/ML, UNKNOWN FREQ.
     Route: 065
     Dates: start: 20230511, end: 20230511
  3. LEXISCAN [Suspect]
     Active Substance: REGADENOSON
     Indication: Coronary artery disease
     Dosage: 0.4 MG/ML, UNKNOWN FREQ.
     Route: 065
     Dates: start: 20230511, end: 20230511
  4. LEXISCAN [Suspect]
     Active Substance: REGADENOSON
     Indication: Coronary artery disease
     Dosage: 0.4 MG/ML, UNKNOWN FREQ.
     Route: 065
     Dates: start: 20230511, end: 20230511

REACTIONS (3)
  - Bradycardia [Recovered/Resolved]
  - Loss of consciousness [Recovered/Resolved]
  - Off label use [Recovered/Resolved]

NARRATIVE: CASE EVENT DATE: 20230511
